FAERS Safety Report 6111686-8 (Version None)
Quarter: 2009Q1

REPORT INFORMATION
  Report Type: 
  Country: None (occurrence: None)
  Receive Date: 20090310
  Receipt Date: 20090310
  Transmission Date: 20090719
  Serious: Yes (Other)
  Sender: FDA-Public Use
  Company Number: None

PATIENT
  Age: 37 Year
  Sex: Male
  Weight: 79.3795 kg

DRUGS (2)
  1. METOPROLOL SUCCINATE [Suspect]
     Indication: HYPERTENSION
     Dosage: ONCE DAILY PO
     Route: 048
     Dates: start: 20090116, end: 20090309
  2. METOPROLOL SUCCINATE [Suspect]
     Indication: MIGRAINE
     Dosage: ONCE DAILY PO
     Route: 048
     Dates: start: 20090116, end: 20090309

REACTIONS (4)
  - ANXIETY [None]
  - ILL-DEFINED DISORDER [None]
  - PRODUCT QUALITY ISSUE [None]
  - SOMNAMBULISM [None]
